FAERS Safety Report 8579287-X (Version None)
Quarter: 2012Q3

REPORT INFORMATION
  Report Type: 
  Country: None (occurrence: None)
  Receive Date: 20120808
  Receipt Date: 20120807
  Transmission Date: 20120928
  Serious: Yes (Hospitalization, Other)
  Sender: FDA-Public Use
  Company Number: US-PFIZER INC-2010113457

PATIENT
  Sex: Male

DRUGS (1)
  1. CHANTIX [Suspect]
     Indication: SMOKING CESSATION THERAPY
     Dosage: UNK
     Dates: start: 20090201

REACTIONS (7)
  - SKIN ULCER [None]
  - INTENTIONAL SELF-INJURY [None]
  - OBSESSIVE-COMPULSIVE DISORDER [None]
  - SCAR [None]
  - DEPRESSION [None]
  - ABNORMAL BEHAVIOUR [None]
  - ANXIETY [None]
